FAERS Safety Report 10041122 (Version 2)
Quarter: 2014Q2

REPORT INFORMATION
  Report Type: Spontaneous
  Country: US (occurrence: US)
  Receive Date: 20140327
  Receipt Date: 20140612
  Transmission Date: 20141212
  Serious: Yes (Hospitalization)
  Sender: FDA-Public Use
  Company Number: US-SA-2014SA037495

PATIENT
  Age: 38 Year
  Sex: Male
  Weight: 95.25 kg

DRUGS (24)
  1. FABRAZYME [Suspect]
     Indication: FABRY^S DISEASE
     Route: 042
  2. LYRICA [Concomitant]
  3. BENADRYL [Concomitant]
     Route: 042
  4. NORMAL SALINE [Concomitant]
  5. SODIUM CHLORIDE [Concomitant]
  6. WATER [Concomitant]
  7. EPIPEN [Concomitant]
  8. LIDOCAINE [Concomitant]
  9. PLAVIX [Concomitant]
  10. CARBAMAZEPINE [Concomitant]
  11. CELLCEPT [Concomitant]
  12. PRISTIQ [Concomitant]
  13. RAMIPRIL [Concomitant]
  14. PROGRAF [Concomitant]
  15. COZAAR [Concomitant]
  16. ATORVASTATIN [Concomitant]
  17. PREDNISONE [Concomitant]
  18. PREDNISONE [Concomitant]
     Route: 042
  19. SEREVENT [Concomitant]
  20. HYDROCODONE W/ACETAMINOPHEN [Concomitant]
  21. ASPIRIN [Concomitant]
  22. TYLENOL [Concomitant]
  23. FISH OIL [Concomitant]
  24. DOCUSATE [Concomitant]

REACTIONS (2)
  - Transient ischaemic attack [Recovered/Resolved]
  - Hypoaesthesia [Unknown]
